FAERS Safety Report 6390862-3 (Version None)
Quarter: 2009Q4

REPORT INFORMATION
  Report Type: 
  Country: None (occurrence: None)
  Receive Date: 20091003
  Receipt Date: 20090918
  Transmission Date: 20100525
  Serious: Yes (Other)
  Sender: FDA-Public Use
  Company Number: DSU-2009-02028

PATIENT
  Sex: Male
  Weight: 55 kg

DRUGS (2)
  1. OLMESARTAN MEDOXOMIL [Suspect]
     Indication: BLOOD PRESSURE ABNORMAL
     Dosage: 40 MG PER ORAL
     Route: 048
     Dates: start: 20080901
  2. SOMALGIN (ACETYLSALICYLIC ACID, MAGNESIUM CARBONATE, ALUMINIUM GLYCINA [Concomitant]

REACTIONS (6)
  - BLISTER [None]
  - DYSPHONIA [None]
  - GENERALISED ERYTHEMA [None]
  - MASS [None]
  - PRURITUS [None]
  - THROAT TIGHTNESS [None]
